FAERS Safety Report 10354602 (Version 1)
Quarter: 2014Q3

REPORT INFORMATION
  Report Type: Spontaneous
  Country: SE (occurrence: SE)
  Receive Date: 20140731
  Receipt Date: 20140731
  Transmission Date: 20150326
  Serious: Yes (Death, Life-Threatening, Hospitalization)
  Sender: FDA-Public Use
  Company Number: SE-SA-2014SA093072

PATIENT
  Sex: Female

DRUGS (15)
  1. ZOLPIDEM [Suspect]
     Active Substance: ZOLPIDEM\ZOLPIDEM TARTRATE
     Route: 065
     Dates: end: 20140711
  2. ORALOVITE [Concomitant]
  3. FOLACIN [Concomitant]
     Active Substance: FOLIC ACID
  4. ENALAPRIL [Concomitant]
     Active Substance: ENALAPRIL
  5. BIOCLAVID [Concomitant]
     Active Substance: AMOXICILLIN\CLAVULANIC ACID
  6. METOPROLOL [Concomitant]
     Active Substance: METOPROLOL
  7. LEVAXIN [Concomitant]
     Active Substance: LEVOTHYROXINE SODIUM
  8. LEVEMIR [Concomitant]
     Active Substance: INSULIN DETEMIR
  9. DUROFERON [Concomitant]
     Active Substance: FERROUS SULFATE\FERROUS SULFATE, DRIED
  10. OMEPRAZOLE. [Concomitant]
     Active Substance: OMEPRAZOLE
  11. ETALPHA [Concomitant]
     Active Substance: ALFACALCIDOL
  12. AMINESS [Concomitant]
     Active Substance: AMINO ACIDS
  13. PROPAVAN [Suspect]
     Active Substance: PROPIOMAZINE
     Route: 065
     Dates: start: 20140619, end: 20140711
  14. EPOETIN NOS [Concomitant]
     Active Substance: ERYTHROPOIETIN
  15. SERTRALINE [Concomitant]
     Active Substance: SERTRALINE HYDROCHLORIDE

REACTIONS (14)
  - Abdominal pain [Fatal]
  - Cardiac arrest [Fatal]
  - Brain oedema [Fatal]
  - Brain injury [Fatal]
  - Chest pain [Fatal]
  - Suicide attempt [Fatal]
  - Respiratory disorder [Fatal]
  - Pulse absent [Fatal]
  - Pyrexia [Fatal]
  - Cyanosis [Fatal]
  - Encephalopathy [Fatal]
  - Peritonitis [Fatal]
  - Loss of consciousness [Fatal]
  - Poisoning [Fatal]

NARRATIVE: CASE EVENT DATE: 20140711
